FAERS Safety Report 4314488-8 (Version None)
Quarter: 2004Q1

REPORT INFORMATION
  Report Type: 
  Country: None (occurrence: None)
  Receive Date: 20040309
  Receipt Date: 20031218
  Transmission Date: 20041129
  Serious: Yes (Hospitalization)
  Sender: FDA-Public Use
  Company Number: PHHO2003IN16370

PATIENT
  Age: 42 Year
  Sex: Female

DRUGS (2)
  1. GLEEVEC [Suspect]
     Indication: CHRONIC MYELOID LEUKAEMIA
     Dosage: 400 MG, QD
     Route: 048
     Dates: start: 20030227, end: 20030929
  2. METHOTREXATE [Suspect]
     Indication: PSORIASIS
     Dosage: UNK, QW

REACTIONS (8)
  - ABDOMINAL DISCOMFORT [None]
  - ANAEMIA [None]
  - PETECHIAE [None]
  - PLATELET COUNT DECREASED [None]
  - PSORIASIS [None]
  - PURPURA [None]
  - PYREXIA [None]
  - SKIN INFLAMMATION [None]
